FAERS Safety Report 5844610-3 (Version None)
Quarter: 2008Q3

REPORT INFORMATION
  Report Type: 
  Country: None (occurrence: None)
  Receive Date: 20080812
  Receipt Date: 20080731
  Transmission Date: 20090109
  Serious: Yes (Hospitalization)
  Sender: FDA-Public Use
  Company Number: 1000000375

PATIENT
  Age: 75 Year
  Sex: Female

DRUGS (1)
  1. ESCITALOPRAM [Suspect]
     Dosage: 5 MG, (5 MG, 1 IN 1 D), ORAL
     Route: 048
     Dates: start: 20080401, end: 20080101

REACTIONS (4)
  - DRY MOUTH [None]
  - HAEMATEMESIS [None]
  - NERVOUSNESS [None]
  - POOR QUALITY SLEEP [None]
